FAERS Safety Report 22242541 (Version 1)
Quarter: 2023Q2

REPORT INFORMATION
  Report Type: Spontaneous
  Country: US (occurrence: None)
  Receive Date: 20230420
  Receipt Date: 20230420
  Transmission Date: 20230721
  Serious: Yes (Hospitalization)
  Sender: FDA-Public Use
  Company Number: None

PATIENT
  Sex: Female

DRUGS (2)
  1. TAFINLAR [Suspect]
     Active Substance: DABRAFENIB MESYLATE
     Indication: Product used for unknown indication
     Route: 048
     Dates: start: 20220407, end: 20230411
  2. MEKINIST [Suspect]
     Active Substance: TRAMETINIB DIMETHYL SULFOXIDE

REACTIONS (7)
  - Haematochezia [None]
  - Blood urine present [None]
  - Asthenia [None]
  - Hypophagia [None]
  - Hypersomnia [None]
  - Therapy cessation [None]
  - Muscular weakness [None]

NARRATIVE: CASE EVENT DATE: 20221021
